FAERS Safety Report 15564805 (Version 1)
Quarter: 2018Q4

REPORT INFORMATION
  Report Type: Spontaneous
  Country: US (occurrence: US)
  Receive Date: 20181030
  Receipt Date: 20181030
  Transmission Date: 20190205
  Serious: Yes (Hospitalization)
  Sender: FDA-Public Use
  Company Number: None

PATIENT
  Age: 45 Year
  Sex: Male
  Weight: 74.8 kg

DRUGS (5)
  1. IBUPROFEN. [Concomitant]
     Active Substance: IBUPROFEN
  2. ACETAMINOPHEN. [Concomitant]
     Active Substance: ACETAMINOPHEN
  3. VEMURAFENIB. [Suspect]
     Active Substance: VEMURAFENIB
     Indication: METASTATIC MALIGNANT MELANOMA
     Route: 048
     Dates: start: 20180206, end: 20180219
  4. COBIMETINIB. [Concomitant]
     Active Substance: COBIMETINIB
     Dates: start: 20180206, end: 20180219
  5. MINOXIDIL TOPICAL SOLUTION [Concomitant]
     Active Substance: MINOXIDIL

REACTIONS (10)
  - Mucosal pain [None]
  - Herpes simplex [None]
  - Fatigue [None]
  - Rash erythematous [None]
  - Pyrexia [None]
  - Mucosal inflammation [None]
  - Therapy change [None]
  - Peripheral swelling [None]
  - Face oedema [None]
  - Drug reaction with eosinophilia and systemic symptoms [None]

NARRATIVE: CASE EVENT DATE: 20180219
